FAERS Safety Report 7594914-1 (Version None)
Quarter: 2011Q2

REPORT INFORMATION
  Report Type: 
  Country: None (occurrence: None)
  Receive Date: 20110615
  Receipt Date: 20100611
  Transmission Date: 20111010
  Serious: Yes (Hospitalization)
  Sender: FDA-Public Use
  Company Number: WAES 1006USA01796

PATIENT
  Age: 87 Year
  Sex: Female

DRUGS (8)
  1. SULAR [Concomitant]
  2. LASIX [Concomitant]
  3. TOPROL-XL [Concomitant]
  4. COZAAR [Suspect]
     Indication: HYPERTENSION
     Dosage: 100 MG/DAILY/PO
     Route: 048
     Dates: end: 20100411
  5. COZAAR [Suspect]
     Indication: HYPERTENSION
     Dosage: 100 MG/DAILY/PO
     Route: 048
     Dates: start: 20060101
  6. COZAAR [Suspect]
     Indication: HYPERTENSION
     Dosage: 100 MG/DAILY/PO
     Route: 048
     Dates: start: 20100411, end: 20100506
  7. COZAAR [Suspect]
     Indication: HYPERTENSION
     Dosage: 100 MG/DAILY/PO
     Route: 048
     Dates: start: 20100506
  8. COUMADIN [Concomitant]

REACTIONS (8)
  - MEMORY IMPAIRMENT [None]
  - JOINT SWELLING [None]
  - SOMNOLENCE [None]
  - RASH [None]
  - BLOOD PRESSURE INCREASED [None]
  - CEREBROVASCULAR ACCIDENT [None]
  - TOOTHACHE [None]
  - GINGIVAL PAIN [None]
